FAERS Safety Report 24247779 (Version 3)
Quarter: 2025Q3

REPORT INFORMATION
  Report Type: Spontaneous
  Country: US (occurrence: US)
  Receive Date: 20240826
  Receipt Date: 20250802
  Transmission Date: 20251020
  Serious: Yes (Death, Other)
  Sender: ALEXION PHARMACEUTICALS
  Company Number: 2024A191064

PATIENT
  Age: 68 Year
  Sex: Female
  Weight: 63.503 kg

DRUGS (1)
  1. TEZSPIRE [Suspect]
     Active Substance: TEZEPELUMAB-EKKO
     Indication: Asthma

REACTIONS (2)
  - Immunodeficiency [Fatal]
  - Meningitis [Unknown]

NARRATIVE: CASE EVENT DATE: 20240729
